FAERS Safety Report 15289301 (Version 2)
Quarter: 2019Q2

REPORT INFORMATION
  Report Type: Report from Study
  Country: JP (occurrence: JP)
  Receive Date: 20180817
  Receipt Date: 20190404
  Transmission Date: 20190711
  Serious: Yes (Death, Other)
  Sender: FDA-Public Use
  Company Number: JP-AMGEN-JPNNI2018112607

PATIENT
  Age: 61 Year
  Sex: Female
  Weight: 44 kg

DRUGS (8)
  1. CARFILZOMIB [Suspect]
     Active Substance: CARFILZOMIB
     Dosage: 27 MG/M2 (05 DEC, 06 DEC, 12 DEC, 13 DEC, 26 DEC, 27 DEC, 10 JAN 2017, 11 JAN, 16 JAN, 30 JNA, 31 JA
     Route: 041
  2. LENALIDOMIDE [Suspect]
     Active Substance: LENALIDOMIDE
     Indication: PLASMA CELL MYELOMA
     Dosage: 25 MG, UNK
     Route: 048
     Dates: start: 20160926, end: 20161005
  3. DEXAMETHASONE. [Concomitant]
     Active Substance: DEXAMETHASONE
     Indication: PLASMA CELL MYELOMA
     Dosage: UNK
     Dates: start: 20160926
  4. ACICLOVIR [Concomitant]
     Active Substance: ACYCLOVIR
     Indication: ANTIVIRAL PROPHYLAXIS
     Dosage: UNK
  5. CARFILZOMIB [Suspect]
     Active Substance: CARFILZOMIB
     Indication: PLASMA CELL MYELOMA
     Dosage: 20 MG/M2 (26 SEP 2916, 27 SEP)
     Route: 041
     Dates: start: 20160926
  6. CARFILZOMIB [Suspect]
     Active Substance: CARFILZOMIB
     Dosage: 27 MG/M2 (06 FEB, 07 FEB, 27 FEB, 28 FEB, 06 MAR, 21 MAR, 22 MAR, 27 MAR, 28 MAR)
     Route: 041
     Dates: end: 20161101
  7. DEXAMETHASONE. [Concomitant]
     Active Substance: DEXAMETHASONE
     Dosage: UNK
     Dates: end: 20170328
  8. CARFILZOMIB [Suspect]
     Active Substance: CARFILZOMIB
     Dosage: 27 MG/M2 (03 OCT, 04 OCT, 24 OCT, 25 OCT, 31 OCT, 01 NOV, 14 NOV, 15 NOV,21 NOV,22 NOV)
     Route: 041

REACTIONS (4)
  - Platelet count decreased [Not Recovered/Not Resolved]
  - Cerebral haemorrhage [Fatal]
  - Neutropenia [Not Recovered/Not Resolved]
  - Anaemia [Not Recovered/Not Resolved]

NARRATIVE: CASE EVENT DATE: 20161006
